FAERS Safety Report 7438084-9 (Version None)
Quarter: 2011Q2

REPORT INFORMATION
  Report Type: 
  Country: None (occurrence: None)
  Receive Date: 20110426
  Receipt Date: 20110412
  Transmission Date: 20111010
  Serious: Yes (Other)
  Sender: FDA-Public Use
  Company Number: FR-CELGENEUS-056-21880-11041410

PATIENT
  Sex: Male

DRUGS (9)
  1. REVLIMID [Suspect]
     Dosage: 10 MILLIGRAM
     Route: 048
     Dates: start: 20070531
  2. INIPOMP [Concomitant]
     Route: 065
  3. REVLIMID [Suspect]
     Dosage: 25 MILLIGRAM
     Route: 048
     Dates: start: 20070326, end: 20070513
  4. PREVISCAN [Concomitant]
     Route: 065
  5. ZOLPIDEM [Concomitant]
     Route: 065
  6. LOVENOX [Concomitant]
     Route: 058
  7. KALIONID [Concomitant]
     Route: 065
  8. PROPRANOLOL [Concomitant]
     Route: 065
  9. MAG 2 [Concomitant]
     Route: 065

REACTIONS (1)
  - HYPOPHARYNGEAL CANCER [None]
